FAERS Safety Report 8350750-X (Version None)
Quarter: 2012Q2

REPORT INFORMATION
  Report Type: 
  Country: None (occurrence: None)
  Receive Date: 20120510
  Receipt Date: 20120509
  Transmission Date: 20120825
  Serious: Yes (Other)
  Sender: FDA-Public Use
  Company Number: US-GLAXOSMITHKLINE-A0976910A

PATIENT
  Age: 45 Year
  Sex: Male

DRUGS (2)
  1. WELLBUTRIN [Suspect]
     Indication: PRODUCT USED FOR UNKNOWN INDICATION
     Route: 048
  2. BC ARTHRITIS STRENGTH POWDER [Suspect]
     Indication: HEADACHE
     Route: 048

REACTIONS (5)
  - DRUG INTERACTION [None]
  - DEAFNESS [None]
  - EAR DISCOMFORT [None]
  - DRUG ADMINISTRATION ERROR [None]
  - TINNITUS [None]
